FAERS Safety Report 5808171-7 (Version None)
Quarter: 2008Q3

REPORT INFORMATION
  Report Type: 
  Country: None (occurrence: None)
  Receive Date: 20080709
  Receipt Date: 20080624
  Transmission Date: 20090109
  Serious: Yes (Hospitalization)
  Sender: FDA-Public Use
  Company Number: 2008PV035875

PATIENT
  Age: 63 Year
  Sex: Female

DRUGS (9)
  1. SYMLIN [Suspect]
     Indication: TYPE 2 DIABETES MELLITUS
     Dosage: 120 MCG; SC, 105 MCG; SC, 60 MCG; SC, 90 MCG; SC, 15 MCG, SC
     Route: 058
     Dates: start: 20071119, end: 20070101
  2. SYMLIN [Suspect]
     Indication: TYPE 2 DIABETES MELLITUS
     Dosage: 120 MCG; SC, 105 MCG; SC, 60 MCG; SC, 90 MCG; SC, 15 MCG, SC
     Route: 058
     Dates: start: 20071010, end: 20071119
  3. SYMLIN [Suspect]
     Indication: TYPE 2 DIABETES MELLITUS
     Dosage: 120 MCG; SC, 105 MCG; SC, 60 MCG; SC, 90 MCG; SC, 15 MCG, SC
     Route: 058
     Dates: start: 20070101, end: 20071219
  4. SYMLIN [Suspect]
     Indication: TYPE 2 DIABETES MELLITUS
     Dosage: 120 MCG; SC, 105 MCG; SC, 60 MCG; SC, 90 MCG; SC, 15 MCG, SC
     Route: 058
     Dates: start: 20071219, end: 20080116
  5. SYMLIN [Suspect]
     Indication: TYPE 2 DIABETES MELLITUS
     Dosage: 120 MCG; SC, 105 MCG; SC, 60 MCG; SC, 90 MCG; SC, 15 MCG, SC
     Route: 058
     Dates: start: 20080116
  6. LANTUS [Concomitant]
  7. HUMALOG [Concomitant]
  8. THYROLAR [Concomitant]
  9. LIPITOR [Concomitant]

REACTIONS (5)
  - ANGER [None]
  - CEREBROVASCULAR ACCIDENT [None]
  - COGNITIVE DISORDER [None]
  - HEMIPLEGIA [None]
  - PERSONALITY CHANGE [None]
